FAERS Safety Report 9162407 (Version 1)
Quarter: 2013Q1

REPORT INFORMATION
  Report Type: Spontaneous
  Country: AR (occurrence: AR)
  Receive Date: 20130314
  Receipt Date: 20130314
  Transmission Date: 20140127
  Serious: Yes (Death, Other)
  Sender: FDA-Public Use
  Company Number: PHHY2013AR024764

PATIENT
  Sex: Female

DRUGS (1)
  1. EXELON PATCH [Suspect]
     Indication: DEPRESSION
     Dosage: 4.6 MG, DAILY
     Route: 062

REACTIONS (6)
  - Death [Fatal]
  - Hepatic cancer [Unknown]
  - Pancreatic carcinoma [Unknown]
  - Gastrointestinal carcinoma [Unknown]
  - Vomiting [Unknown]
  - Malaise [Unknown]
